FAERS Safety Report 4410543-2 (Version None)
Quarter: 2004Q3

REPORT INFORMATION
  Report Type: 
  Country: None (occurrence: None)
  Receive Date: 20040726
  Receipt Date: 20040608
  Transmission Date: 20050211
  Serious: Yes (Hospitalization, Other)
  Sender: FDA-Public Use
  Company Number: USA-2003-0010852

PATIENT
  Sex: Female
  Weight: 54.4 kg

DRUGS (11)
  1. OXYCONTIN [Suspect]
     Indication: PAIN
     Dosage: SEE IMAGE
     Route: 048
     Dates: end: 20030701
  2. FENTANYL [Suspect]
     Indication: PAIN
     Dosage: UD
  3. CELEXA [Concomitant]
  4. ZONEGRAN [Concomitant]
  5. ACTIQ [Concomitant]
  6. ZOFRAN [Concomitant]
  7. CECLOR [Concomitant]
  8. ZANTAC [Concomitant]
  9. TOPOMAX (TOPIRAMATE) [Concomitant]
  10. GABITRIL [Concomitant]
  11. ULTRAM [Concomitant]

REACTIONS (22)
  - ABDOMINAL DISCOMFORT [None]
  - ANGER [None]
  - ARTHRALGIA [None]
  - CHOKING SENSATION [None]
  - CONSTIPATION [None]
  - DECREASED APPETITE [None]
  - DEPRESSION [None]
  - DRUG DEPENDENCE [None]
  - DRUG WITHDRAWAL SYNDROME [None]
  - HYPERHIDROSIS [None]
  - HYPOAESTHESIA [None]
  - HYPOTENSION [None]
  - INSOMNIA [None]
  - NECK PAIN [None]
  - PAIN [None]
  - PLEURITIC PAIN [None]
  - PNEUMOTHORAX [None]
  - PROCEDURAL COMPLICATION [None]
  - REFUSAL OF TREATMENT BY PATIENT [None]
  - SOMNOLENCE [None]
  - URINARY INCONTINENCE [None]
  - WEIGHT DECREASED [None]
